FAERS Safety Report 6759731-0 (Version None)
Quarter: 2010Q2

REPORT INFORMATION
  Report Type: 
  Country: None (occurrence: None)
  Receive Date: 20100604
  Receipt Date: 20100528
  Transmission Date: 20101027
  Serious: Yes (Hospitalization, Other)
  Sender: FDA-Public Use
  Company Number: 008967

PATIENT
  Sex: Female
  Weight: 65 kg

DRUGS (10)
  1. CERTOLIZUMAB PEGOL (CDP870) [Suspect]
     Indication: RHEUMATOID ARTHRITIS
     Dosage: 200 MG 1X/2 WEEKS SUBCUTANEOUS, 200 MG 1X/2 WEEKS SUBCUTANEOUS
     Route: 058
     Dates: start: 20100120, end: 20100317
  2. CERTOLIZUMAB PEGOL (CDP870) [Suspect]
     Indication: RHEUMATOID ARTHRITIS
     Dosage: 200 MG 1X/2 WEEKS SUBCUTANEOUS, 200 MG 1X/2 WEEKS SUBCUTANEOUS
     Route: 058
     Dates: start: 20100331
  3. PREDNISONE [Concomitant]
  4. NAPROXEN [Concomitant]
  5. TYLENOL (CAPLET) [Concomitant]
  6. INDAPAMIDE [Concomitant]
  7. RAMIPRIL [Concomitant]
  8. ALENDRONATE SODIUM [Concomitant]
  9. OMEPRAZOLE [Concomitant]
  10. SALAGEN [Concomitant]

REACTIONS (6)
  - DEHYDRATION [None]
  - DIARRHOEA [None]
  - NAUSEA [None]
  - PHARYNGITIS STREPTOCOCCAL [None]
  - URINARY TRACT INFECTION [None]
  - VOMITING [None]
